FAERS Safety Report 5767924-4 (Version None)
Quarter: 2008Q2

REPORT INFORMATION
  Report Type: 
  Country: None (occurrence: None)
  Receive Date: 20080612
  Receipt Date: 20080605
  Transmission Date: 20081010
  Serious: Yes (Other)
  Sender: FDA-Public Use
  Company Number: AR-ABBOTT-08P-007-0438111-00

PATIENT
  Sex: Male
  Weight: 67 kg

DRUGS (4)
  1. AKINETON [Suspect]
     Indication: PARKINSON'S DISEASE
     Route: 048
     Dates: start: 20070701, end: 20080212
  2. AKINETON [Suspect]
  3. CLONAZEPAM [Concomitant]
     Indication: INSOMNIA
     Route: 048
     Dates: start: 20040101
  4. LEVODOPA [Concomitant]
     Indication: PARKINSON'S DISEASE
     Route: 048
     Dates: start: 20040101

REACTIONS (1)
  - PALPITATIONS [None]
